FAERS Safety Report 9953629 (Version 1)
Quarter: 2014Q1

REPORT INFORMATION
  Report Type: Report from Study
  Country: US (occurrence: US)
  Receive Date: 20140304
  Receipt Date: 20140304
  Transmission Date: 20141002
  Serious: No
  Sender: FDA-Public Use
  Company Number: US-ABBVIE-13P-163-1076074-00

PATIENT
  Age: 43 Year
  Sex: Female

DRUGS (11)
  1. HUMIRA [Suspect]
     Indication: CROHN^S DISEASE
     Dosage: LOADING DOSE
     Dates: start: 20130318, end: 20130318
  2. HUMIRA [Suspect]
     Dates: start: 20130401
  3. PERCOCET [Concomitant]
     Indication: PAIN
     Dosage: 5/325 MG AS NEEDED
  4. IBUPROFEN [Concomitant]
     Indication: PAIN
     Dosage: 200MG 4 AS NEEDED
  5. CYMBALTA [Concomitant]
     Indication: DEPRESSION
     Dosage: 60 MG DAILY
  6. NEURONTIN [Concomitant]
     Indication: DEPRESSION
     Dosage: 300 MG DAILY
  7. PENTASA [Concomitant]
     Indication: PRODUCT USED FOR UNKNOWN INDICATION
     Dosage: 1000 MG DAILY
  8. BABY ASPIRIN [Concomitant]
     Indication: CARDIOVASCULAR EVENT PROPHYLAXIS
  9. DEXILANT [Concomitant]
     Indication: GASTROOESOPHAGEAL REFLUX DISEASE
     Dosage: DAILY
  10. KLONOPIN [Concomitant]
     Indication: INSOMNIA
     Dosage: 2 MG AT NIGHT
  11. VITAMIN B12 SHOTS [Concomitant]
     Indication: VITAMIN B12 DECREASED
     Dosage: ONLY TAKE WHEN REALLY TIRED

REACTIONS (2)
  - Drug ineffective [Not Recovered/Not Resolved]
  - Pain [Not Recovered/Not Resolved]
